FAERS Safety Report 6022347-8 (Version None)
Quarter: 2008Q4

REPORT INFORMATION
  Report Type: 
  Country: None (occurrence: None)
  Receive Date: 20081230
  Receipt Date: 20081219
  Transmission Date: 20090506
  Serious: Yes (Other)
  Sender: FDA-Public Use
  Company Number: CA-JNJFOC-20080400580

PATIENT
  Sex: Female
  Weight: 43.2 kg

DRUGS (3)
  1. REMICADE [Suspect]
     Route: 042
  2. REMICADE [Suspect]
     Dosage: TOTAL # DOSES: 4
     Route: 042
  3. REMICADE [Suspect]
     Indication: RHEUMATOID ARTHRITIS
     Dosage: TOTAL # DOSES: 4
     Route: 042

REACTIONS (2)
  - HERPES ZOSTER [None]
  - SKIN INFECTION [None]
